FAERS Safety Report 8462242-8 (Version None)
Quarter: 2012Q2

REPORT INFORMATION
  Report Type: 
  Country: None (occurrence: None)
  Receive Date: 20120625
  Receipt Date: 20120618
  Transmission Date: 20120825
  Serious: Yes (Hospitalization)
  Sender: FDA-Public Use
  Company Number: US-BAYER-2012-060896

PATIENT
  Age: 23 Year
  Sex: Female
  Weight: 110 kg

DRUGS (9)
  1. PAXIL [Concomitant]
     Dosage: 10 MG, DAILY
     Dates: start: 20041113
  2. TORADOL [Concomitant]
     Dosage: 3 MG, UNK
     Route: 042
     Dates: start: 20041101
  3. MORPHINE [Concomitant]
     Indication: PAIN
     Dosage: UNK
  4. VALIUM [Concomitant]
     Dosage: 1 MG, UNK
     Route: 048
     Dates: start: 20041101
  5. DARVOCET [Concomitant]
     Dosage: UNK
     Dates: start: 20041113
  6. NITROGLYCERIN [Concomitant]
     Dosage: 0.4 MG, UNK
     Route: 060
     Dates: start: 20041101
  7. REGLAN [Concomitant]
     Dosage: UNK
  8. LORTAB [Concomitant]
     Indication: PAIN
     Dosage: UNK
  9. YASMIN [Suspect]
     Dosage: UNK

REACTIONS (1)
  - PULMONARY EMBOLISM [None]
